FAERS Safety Report 16722566 (Version 2)
Quarter: 2019Q3

REPORT INFORMATION
  Report Type: Spontaneous
  Country: JP (occurrence: JP)
  Receive Date: 20190820
  Receipt Date: 20190829
  Transmission Date: 20191005
  Serious: Yes (Other)
  Sender: FDA-Public Use
  Company Number: JP-BEH-2019105813

PATIENT
  Sex: Male

DRUGS (5)
  1. IDELVION [Suspect]
     Active Substance: COAGULATION FACTOR IX RECOMBINANT HUMAN
     Indication: PROPHYLAXIS
     Route: 042
  2. IDELVION [Suspect]
     Active Substance: COAGULATION FACTOR IX RECOMBINANT HUMAN
     Indication: HAEMOPHILIA
  3. NOVACT M FUJISAWA [Concomitant]
     Indication: FACTOR IX DEFICIENCY
     Dosage: UNK
     Route: 042
  4. IDELVION [Suspect]
     Active Substance: COAGULATION FACTOR IX RECOMBINANT HUMAN
     Indication: HAEMOPHILIA
  5. IDELVION [Suspect]
     Active Substance: COAGULATION FACTOR IX RECOMBINANT HUMAN
     Indication: PROPHYLAXIS
     Route: 042

REACTIONS (4)
  - Muscle haemorrhage [Recovered/Resolved]
  - Fall [Recovered/Resolved]
  - Traumatic haemorrhage [Recovered/Resolved]
  - Contusion [Unknown]

NARRATIVE: CASE EVENT DATE: 20190619
